FAERS Safety Report 15229821 (Version 1)
Quarter: 2018Q3

REPORT INFORMATION
  Report Type: Spontaneous
  Country: US (occurrence: US)
  Receive Date: 20180802
  Receipt Date: 20180802
  Transmission Date: 20181010
  Serious: No
  Sender: FDA-Public Use
  Company Number: US-DRREDDYS-USA/USA/18/0099973

PATIENT
  Age: 77 Year
  Sex: Male
  Weight: 79.09 kg

DRUGS (4)
  1. OMEPRAZOLE MAGNESIUM DELAYED RELEASE OTC [Suspect]
     Active Substance: OMEPRAZOLE MAGNESIUM
     Indication: GASTRITIS
  2. TUMS [Concomitant]
     Active Substance: CALCIUM CARBONATE
     Indication: GASTRITIS
  3. TUMS [Concomitant]
     Active Substance: CALCIUM CARBONATE
     Indication: DYSPEPSIA
     Route: 065
  4. OMEPRAZOLE MAGNESIUM DELAYED RELEASE OTC [Suspect]
     Active Substance: OMEPRAZOLE MAGNESIUM
     Indication: DYSPEPSIA
     Route: 065

REACTIONS (7)
  - Dyspnoea [Unknown]
  - Dizziness [Unknown]
  - Extra dose administered [Unknown]
  - Asthenia [Unknown]
  - Flatulence [Unknown]
  - Headache [Unknown]
  - Product quality issue [Unknown]
